FAERS Safety Report 4521625-9 (Version None)
Quarter: 2004Q4

REPORT INFORMATION
  Report Type: 
  Country: None (occurrence: None)
  Receive Date: 20041208
  Receipt Date: 20041208
  Transmission Date: 20050328
  Serious: Yes (Other)
  Sender: FDA-Public Use
  Company Number: None

PATIENT
  Age: 56 Year
  Sex: Female
  Weight: 69.4003 kg

DRUGS (1)
  1. ZOCOR [Suspect]
     Indication: LOW DENSITY LIPOPROTEIN INCREASED
     Dosage: 20 MG  QD  ORAL
     Route: 048
     Dates: start: 20040713, end: 20040809

REACTIONS (2)
  - FAECAL INCONTINENCE [None]
  - URINARY INCONTINENCE [None]
